FAERS Safety Report 5532693-X (Version None)
Quarter: 2007Q4

REPORT INFORMATION
  Report Type: 
  Country: None (occurrence: None)
  Receive Date: 20071119
  Receipt Date: 20070829
  Transmission Date: 20080405
  Serious: No
  Sender: FDA-Public Use
  Company Number: TPA2007A01832

PATIENT
  Age: 49 Year
  Sex: Male
  Weight: 115.6672 kg

DRUGS (12)
  1. ROZEREM [Suspect]
     Indication: INSOMNIA
     Dosage: 8 MG, HS, PER ORAL
     Route: 048
     Dates: start: 20070824
  2. OXYCODONE HCL [Concomitant]
  3. BENICAR [Concomitant]
  4. SOMA [Concomitant]
  5. LEFLUNOMIDE [Concomitant]
  6. LEVOTHYROXINE SODIUM [Concomitant]
  7. CLONIDINE [Concomitant]
  8. DICLOFENAC (DICLOFENAC) [Concomitant]
  9. ZOLOFT [Concomitant]
  10. DOXYCYCLINE [Concomitant]
  11. AVELOX [Concomitant]
  12. CYTOMEL [Concomitant]

REACTIONS (2)
  - MIDDLE INSOMNIA [None]
  - SOMNOLENCE [None]
